FAERS Safety Report 7867142-X (Version None)
Quarter: 2011Q4

REPORT INFORMATION
  Report Type: 
  Country: None (occurrence: None)
  Receive Date: 20111028
  Receipt Date: 20111025
  Transmission Date: 20120403
  Serious: Yes (Other)
  Sender: FDA-Public Use
  Company Number: US-JNJFOC-20101103042

PATIENT
  Sex: Female

DRUGS (9)
  1. ZOCOR [Concomitant]
     Route: 065
     Dates: end: 20081119
  2. CARBOPLATIN [Suspect]
     Indication: PRODUCT USED FOR UNKNOWN INDICATION
     Route: 065
     Dates: end: 20080226
  3. LASIX [Concomitant]
     Route: 065
     Dates: end: 20081119
  4. LOPRESSOR [Concomitant]
     Route: 065
     Dates: end: 20081119
  5. CLINDAMYCIN [Concomitant]
     Dosage: RINSE
     Route: 065
     Dates: end: 20081119
  6. DOXIL [Suspect]
     Indication: OVARIAN EPITHELIAL CANCER RECURRENT
     Dosage: UNSPECIFIED DOSE EVERY 4-7 WEEKS FOR 8 YEARS;  CUMULATIVE DOSE 1800 MG/M2
     Route: 042
     Dates: start: 19970101, end: 20080429
  7. POTASSIUM CHLORIDE [Concomitant]
     Route: 065
     Dates: end: 20081119
  8. ASPIRIN [Concomitant]
     Route: 065
     Dates: end: 20081119
  9. DIOVAN [Concomitant]
     Route: 065
     Dates: end: 20081119

REACTIONS (1)
  - TONGUE NEOPLASM MALIGNANT STAGE UNSPECIFIED [None]
